FAERS Safety Report 8492116 (Version 4)
Quarter: 2012Q4

REPORT INFORMATION
  Report Type: 
  Country: BR (occurrence: BR)
  Receive Date: 20120403
  Receipt Date: 20121025
  Transmission Date: 20130627
  Serious: Yes (Death, Hospitalization, Other)
  Sender: FDA-Public Use
  Company Number: BR-PFIZER INC-2012075045

PATIENT
  Age: 52 Year
  Sex: Male
  Weight: 68 kg

DRUGS (4)
  1. SUTENT [Suspect]
     Indication: METASTATIC RENAL CELL CARCINOMA
     Dosage: 50 mg, 1x/day (cycle 4 for 2)
     Route: 048
     Dates: start: 20120304, end: 201205
  2. OLMETEC [Concomitant]
     Dosage: 40 mg, in the morning
  3. APRESOLINE [Concomitant]
     Dosage: 50 mg, 2x/day (in the morning and at night)
  4. ATENOLOL [Concomitant]
     Dosage: 25 mg, 1x/day (at night)

REACTIONS (12)
  - Multi-organ failure [Fatal]
  - Pleural effusion [Unknown]
  - Abdominal pain [Recovered/Resolved]
  - Malaise [Recovered/Resolved]
  - Muscular weakness [Not Recovered/Not Resolved]
  - Dysstasia [Not Recovered/Not Resolved]
  - Disease progression [Unknown]
  - Metastatic renal cell carcinoma [Unknown]
  - Abdominal distension [Unknown]
  - Oliguria [Unknown]
  - Infrequent bowel movements [Unknown]
  - Pain [Unknown]
